FAERS Safety Report 6303573-7 (Version None)
Quarter: 2009Q3

REPORT INFORMATION
  Report Type: 
  Country: None (occurrence: None)
  Receive Date: 20090810
  Receipt Date: 20080804
  Transmission Date: 20100115
  Serious: Yes (Other)
  Sender: FDA-Public Use
  Company Number: US-GENENTECH-097358

PATIENT
  Age: 42 Year
  Sex: Female
  Weight: 62.198 kg

DRUGS (13)
  1. RITUXAN [Suspect]
     Indication: NON-HODGKIN'S LYMPHOMA
     Dosage: 375 MG/M2, 1/WEEK
     Route: 042
     Dates: start: 19980401
  2. RITUXAN [Suspect]
     Route: 042
     Dates: start: 19990401
  3. RITUXAN [Suspect]
     Dosage: 375 MG/M2, UNK
     Dates: start: 19990101
  4. NEUPOGEN [Concomitant]
     Indication: DRUG USE FOR UNKNOWN INDICATION
  5. DEXAMETHASONE [Concomitant]
     Indication: NON-HODGKIN'S LYMPHOMA
     Dosage: UNK
     Dates: start: 19980801
  6. IFOSFAMIDE [Concomitant]
     Indication: NON-HODGKIN'S LYMPHOMA
     Dosage: UNK
     Dates: start: 19980801
  7. CISPLATIN [Concomitant]
     Indication: NON-HODGKIN'S LYMPHOMA
     Dosage: UNK
     Dates: start: 19980801
  8. ETOPOSIDE [Concomitant]
     Indication: NON-HODGKIN'S LYMPHOMA
     Dosage: UNK
     Dates: start: 19980801
  9. CARMUSTINE [Concomitant]
     Indication: NON-HODGKIN'S LYMPHOMA
     Dosage: UNK
     Dates: start: 19990101
  10. VP-16 [Concomitant]
     Indication: NON-HODGKIN'S LYMPHOMA
     Dosage: UNK
     Dates: start: 19990101
  11. ARA-C [Concomitant]
     Indication: NON-HODGKIN'S LYMPHOMA
     Dosage: UNK
     Dates: start: 19990101
  12. CYCLOPHOSPHAMIDE [Concomitant]
     Indication: NON-HODGKIN'S LYMPHOMA
     Dosage: UNK
     Dates: start: 19990101
  13. AUTOLOGOUS PERIPHERAL BLOOD STEM CELL TRANSPL [Concomitant]
     Indication: NON-HODGKIN'S LYMPHOMA

REACTIONS (3)
  - ASTHENIA [None]
  - PROGRESSIVE MULTIFOCAL LEUKOENCEPHALOPATHY [None]
  - VISUAL IMPAIRMENT [None]
